FAERS Safety Report 7755412-5 (Version None)
Quarter: 2011Q3

REPORT INFORMATION
  Report Type: 
  Country: None (occurrence: None)
  Receive Date: 20110916
  Receipt Date: 20110907
  Transmission Date: 20111222
  Serious: Yes (Other)
  Sender: FDA-Public Use
  Company Number: DE-B.I. PHARMACEUTICALS,INC./RIDGEFIELD-2011-DE-04898DE

PATIENT
  Sex: Male
  Weight: 98 kg

DRUGS (10)
  1. FORMOTEROL FUMARATE [Concomitant]
     Indication: BRONCHIAL CARCINOMA
     Dosage: 1 ANZ
     Dates: start: 20010701
  2. ATACAND [Concomitant]
     Indication: HYPERTENSION
     Dosage: 1 ANZ
  3. VOLTAREN [Concomitant]
     Indication: OSTEOARTHRITIS
  4. SPIRIVA [Suspect]
     Indication: CHRONIC OBSTRUCTIVE PULMONARY DISEASE
     Dosage: 1 ANZ
     Dates: start: 20010701, end: 20110826
  5. ARELIX RR6 [Concomitant]
     Indication: HYPERTENSION
     Dosage: 1 ANZ
  6. LEVOTHYROXINE SODIUM [Concomitant]
  7. ALLOPURINOL [Concomitant]
  8. VOLTAREN [Concomitant]
     Indication: ARTHRITIS
  9. VOLTAREN [Concomitant]
     Indication: SPINAL DISORDER
     Dosage: 1 ANZ
  10. NORVASC [Concomitant]
     Indication: HYPERTENSION
     Dosage: 1 ANZ

REACTIONS (4)
  - BRONCHIAL CARCINOMA [None]
  - GLAUCOMA [None]
  - CONSTIPATION [None]
  - EPISTAXIS [None]
